FAERS Safety Report 21153249 (Version 1)
Quarter: 2022Q3

REPORT INFORMATION
  Report Type: Spontaneous
  Country: US (occurrence: US)
  Receive Date: 20220731
  Receipt Date: 20220731
  Transmission Date: 20221027
  Serious: Yes (Death, Other)
  Sender: FDA-Public Use
  Company Number: US-SA-SAC20220728001713

PATIENT
  Age: 46 Year
  Sex: Female

DRUGS (1)
  1. ZANTAC [Suspect]
     Active Substance: RANITIDINE HYDROCHLORIDE
     Indication: Dyspepsia
     Dosage: 150 MG, QD
     Dates: start: 199601, end: 201712

REACTIONS (3)
  - Colorectal cancer stage IV [Fatal]
  - Renal cancer stage IV [Fatal]
  - Gallbladder cancer stage IV [Fatal]

NARRATIVE: CASE EVENT DATE: 20140416
